FAERS Safety Report 9898384 (Version 2)
Quarter: 2014Q2

REPORT INFORMATION
  Report Type: Spontaneous
  Country: JP (occurrence: JP)
  Receive Date: 20140214
  Receipt Date: 20140627
  Transmission Date: 20141212
  Serious: Yes (Death)
  Sender: FDA-Public Use
  Company Number: JP-ELI_LILLY_AND_COMPANY-JP201402003406

PATIENT
  Age: 70 Year
  Sex: Female
  Weight: 36 kg

DRUGS (4)
  1. GEMZAR [Suspect]
     Indication: T-CELL PROLYMPHOCYTIC LEUKAEMIA
     Dosage: 1200 MG, UNK
     Route: 042
     Dates: start: 20131227, end: 20131227
  2. DEXART [Concomitant]
     Indication: T-CELL PROLYMPHOCYTIC LEUKAEMIA
     Dosage: 19.8 MG, UNK
     Route: 065
     Dates: start: 20131227, end: 20131227
  3. ITRIZOLE [Concomitant]
     Route: 048
  4. CRAVIT [Concomitant]
     Dosage: UNK
     Route: 065
     Dates: end: 20140121

REACTIONS (1)
  - Pneumocystis jirovecii pneumonia [Fatal]
